FAERS Safety Report 9894782 (Version 1)
Quarter: 2014Q1

REPORT INFORMATION
  Report Type: Spontaneous
  Country: TR (occurrence: TR)
  Receive Date: 20140213
  Receipt Date: 20140213
  Transmission Date: 20141002
  Serious: Yes (Hospitalization)
  Sender: FDA-Public Use
  Company Number: PHHY2014TR016624

PATIENT
  Age: 56 Year
  Sex: Female

DRUGS (2)
  1. 5-FLUOROURACIL [Suspect]
     Indication: COLON CANCER STAGE III
  2. CALCIUM FOLINATE [Concomitant]
     Indication: COLON CANCER STAGE III

REACTIONS (7)
  - Wernicke^s encephalopathy [Recovered/Resolved]
  - Epilepsy [Recovered/Resolved]
  - Loss of consciousness [Recovered/Resolved]
  - Disorientation [Recovered/Resolved]
  - Ophthalmoplegia [Recovered/Resolved]
  - Nystagmus [Recovered/Resolved]
  - Hyperreflexia [Recovered/Resolved]
